FAERS Safety Report 11286678 (Version 1)
Quarter: 2015Q3

REPORT INFORMATION
  Report Type: Spontaneous
  Country: US (occurrence: None)
  Receive Date: 20150717
  Receipt Date: 20150717
  Transmission Date: 20151125
  Serious: No
  Sender: FDA-Public Use
  Company Number: None

PATIENT
  Age: 72 Year
  Sex: Male
  Weight: 58.2 kg

DRUGS (2)
  1. DAPTOMYCIN. [Suspect]
     Active Substance: DAPTOMYCIN
     Indication: OSTEOMYELITIS
     Route: 042
     Dates: start: 20141218, end: 20141231
  2. MOXIFLOXACIN. [Suspect]
     Active Substance: MOXIFLOXACIN
     Indication: OSTEOMYELITIS
     Route: 048
     Dates: start: 20141218, end: 20141231

REACTIONS (1)
  - Rhabdomyolysis [None]

NARRATIVE: CASE EVENT DATE: 20150101
